FAERS Safety Report 5101372-5 (Version None)
Quarter: 2006Q3

REPORT INFORMATION
  Report Type: 
  Country: None (occurrence: None)
  Receive Date: 20060911
  Receipt Date: 20060831
  Transmission Date: 20061208
  Serious: Yes (Hospitalization)
  Sender: FDA-Public Use
  Company Number: US-ROCHE-461928

PATIENT
  Age: 73 Week
  Sex: Male
  Weight: 9 kg

DRUGS (4)
  1. ACCUTANE [Suspect]
     Indication: JUVENILE CHRONIC MYELOMONOCYTIC LEUKAEMIA
     Route: 048
     Dates: start: 20051015
  2. ACCUTANE [Suspect]
     Dosage: AS WEIGHT INCREASED, DOSE WAS INCREASED TO 40 MG DAILY.
     Route: 048
     Dates: end: 20060615
  3. CYTARABINE [Concomitant]
     Indication: JUVENILE CHRONIC MYELOMONOCYTIC LEUKAEMIA
     Dosage: TWO COURSES.
     Dates: start: 20051015, end: 20060215
  4. FLUDARABINE [Concomitant]
     Indication: JUVENILE CHRONIC MYELOMONOCYTIC LEUKAEMIA
     Dosage: TWO COURSES.
     Dates: start: 20051015, end: 20060215

REACTIONS (2)
  - BONE MARROW TRANSPLANT [None]
  - JUVENILE CHRONIC MYELOMONOCYTIC LEUKAEMIA [None]
